FAERS Safety Report 9770430 (Version 1)
Quarter: 2013Q4

REPORT INFORMATION
  Report Type: Spontaneous
  Country: GB (occurrence: GB)
  Receive Date: 20131218
  Receipt Date: 20131218
  Transmission Date: 20140711
  Serious: Yes (Hospitalization)
  Sender: FDA-Public Use
  Company Number: PHHY2013GB144912

PATIENT
  Age: 86 Year
  Sex: Female

DRUGS (6)
  1. RAMIPRIL [Suspect]
     Dosage: 5 MG, UNK
  2. CO-CODAMOL [Suspect]
     Indication: FALL
     Dosage: 5 MG, QD
  3. CO-CODAMOL [Suspect]
     Indication: JOINT INJURY
  4. BENDROFLUMETHIAZIDE [Suspect]
  5. SIMVASTATIN [Concomitant]
  6. ASPIRIN [Concomitant]

REACTIONS (12)
  - Fall [Recovered/Resolved]
  - Diet refusal [Recovered/Resolved]
  - Gait disturbance [Recovered/Resolved]
  - Hypophagia [Recovered/Resolved]
  - Urinary incontinence [Recovered/Resolved]
  - Dementia [Recovered/Resolved]
  - Delirium [Recovered/Resolved]
  - Confusional state [Recovered/Resolved]
  - Toxicity to various agents [Recovered/Resolved]
  - Renal failure acute [Recovered/Resolved]
  - Constipation [Recovered/Resolved]
  - Somnolence [Recovered/Resolved]
